FAERS Safety Report 16332579 (Version 2)
Quarter: 2020Q4

REPORT INFORMATION
  Report Type: Report from Study
  Country: IT (occurrence: IT)
  Receive Date: 20190520
  Receipt Date: 20201015
  Transmission Date: 20210113
  Serious: Yes (Other)
  Sender: FDA-Public Use
  Company Number: IT-TEVA-2019-IT-1051645

PATIENT
  Age: 64 Year
  Sex: Male

DRUGS (3)
  1. OXALIPLATINO SUN 5 MG/ML CONCENTRATO PER SOLUZIONE PER INFUSIONE [Suspect]
     Active Substance: OXALIPLATIN
     Indication: ADENOCARCINOMA OF COLON
     Dosage: 160 MG FOR 1 CYCLICAL.
     Route: 042
     Dates: start: 20190225, end: 20190225
  2. FLUOROURACIL. [Suspect]
     Active Substance: FLUOROURACIL
     Indication: ADENOCARCINOMA OF COLON
     Dosage: 4670 MG FOR 1 CYCLICAL
     Route: 042
     Dates: start: 20190225, end: 20190225
  3. CALCIO LEVOFOLINATO TEVA 175 MG POLVERE PER SOLUZIONE PER INFUSIONE [Suspect]
     Active Substance: LEVOLEUCOVORIN CALCIUM
     Indication: ADENOCARCINOMA OF COLON
     Dosage: 330 MG FOR 1 CYCLICAL
     Route: 042
     Dates: start: 20190225, end: 20190225

REACTIONS (2)
  - Thrombocytopenia [Recovered/Resolved]
  - Leukopenia [Recovered/Resolved]

NARRATIVE: CASE EVENT DATE: 20190308
